APPROVED DRUG PRODUCT: DOCOSANOL
Active Ingredient: DOCOSANOL
Strength: 10%
Dosage Form/Route: CREAM;TOPICAL
Application: A208754 | Product #001
Applicant: P AND L DEVELOPMENT LLC
Approved: Nov 19, 2018 | RLD: No | RS: No | Type: OTC